FAERS Safety Report 4366696-8 (Version None)
Quarter: 2004Q2

REPORT INFORMATION
  Report Type: 
  Country: None (occurrence: None)
  Receive Date: 20040527
  Receipt Date: 20040506
  Transmission Date: 20050107
  Serious: Yes (Hospitalization)
  Sender: FDA-Public Use
  Company Number: GB-BRISTOL-MYERS SQUIBB COMPANY-12581765

PATIENT
  Sex: Female

DRUGS (1)
  1. VELOSEF [Suspect]
     Indication: INFECTION
     Dosage: (1G)
     Route: 048
     Dates: start: 20040115, end: 20040122

REACTIONS (3)
  - BLOOD BILIRUBIN INCREASED [None]
  - JAUNDICE [None]
  - LIVER FUNCTION TEST ABNORMAL [None]
